FAERS Safety Report 20088166 (Version 1)
Quarter: 2021Q4

REPORT INFORMATION
  Report Type: Spontaneous
  Country: US (occurrence: US)
  Receive Date: 20211118
  Receipt Date: 20211118
  Transmission Date: 20220303
  Serious: No
  Sender: FDA-Public Use
  Company Number: US-3MMEDICAL-2020-US-026566

PATIENT
  Age: 72 Year
  Sex: Female

DRUGS (6)
  1. DURAPREP [Suspect]
     Active Substance: IODINE POVACRYLEX\ISOPROPYL ALCOHOL
     Indication: Preoperative care
     Dosage: 6 ML SINGLE DOSE
     Route: 061
     Dates: start: 20201012, end: 20201012
  2. Disposable wipes (brand name not known to consumer) [Concomitant]
     Dates: start: 20201012, end: 20201012
  3. Trilogy [Concomitant]
  4. BYSTOLIC [Concomitant]
     Active Substance: NEBIVOLOL HYDROCHLORIDE
  5. ACE inhibitor (unspecified) [Concomitant]
  6. Blood Pressure Medication (brand not recalled) [Concomitant]

REACTIONS (2)
  - Rash [Recovering/Resolving]
  - Pruritus [Recovered/Resolved]

NARRATIVE: CASE EVENT DATE: 20201012
